FAERS Safety Report 9825543 (Version 1)
Quarter: 2014Q1

REPORT INFORMATION
  Report Type: Spontaneous
  Country: CZ (occurrence: CZ)
  Receive Date: 20140117
  Receipt Date: 20140117
  Transmission Date: 20141002
  Serious: Yes (Other)
  Sender: FDA-Public Use
  Company Number: PHHY2014CZ004457

PATIENT
  Age: 63 Year
  Sex: Male

DRUGS (2)
  1. ZOMETA [Suspect]
     Dosage: UNK UKN, UNK
  2. XGEVA [Suspect]
     Indication: METASTASES TO BONE
     Dosage: UNK UKN, UNK
     Dates: start: 20130501

REACTIONS (1)
  - Osteonecrosis of jaw [Unknown]
